FAERS Safety Report 4905700-2 (Version None)
Quarter: 2006Q1

REPORT INFORMATION
  Report Type: 
  Country: None (occurrence: None)
  Receive Date: 20060203
  Receipt Date: 20060123
  Transmission Date: 20060701
  Serious: Yes (Hospitalization)
  Sender: FDA-Public Use
  Company Number: 2005BI021366

PATIENT
  Age: 45 Year
  Sex: Male

DRUGS (1)
  1. AVONEX [Suspect]
     Indication: MULTIPLE SCLEROSIS
     Dosage: 30 UG;QW;IM
     Route: 030
     Dates: start: 20051126, end: 20051126

REACTIONS (5)
  - ATELECTASIS [None]
  - BALANCE DISORDER [None]
  - HYPOKALAEMIA [None]
  - STATUS EPILEPTICUS [None]
  - WHITE BLOOD CELL COUNT INCREASED [None]
